FAERS Safety Report 8341333-6 (Version None)
Quarter: 2012Q2

REPORT INFORMATION
  Report Type: 
  Country: None (occurrence: None)
  Receive Date: 20120507
  Receipt Date: 20120423
  Transmission Date: 20120825
  Serious: Yes (Hospitalization, Disabling, Other)
  Sender: FDA-Public Use
  Company Number: US-MYLANLABS-2009AC000092

PATIENT
  Age: 56 Year
  Sex: Female
  Weight: 132 kg

DRUGS (94)
  1. LEVOXYL [Concomitant]
  2. LISINOPRIL [Concomitant]
  3. FUROSEMIDE [Concomitant]
  4. NOVOLIN N [Concomitant]
  5. VICODIN [Concomitant]
  6. CELEXA [Concomitant]
  7. CYCLOBENZAPRINE [Concomitant]
  8. NOVOLIN R [Concomitant]
  9. SLOW-MAG [Concomitant]
  10. VIOXX [Concomitant]
  11. ZESTRIL [Concomitant]
  12. ZOLOFT [Concomitant]
  13. HYDROCODONE BITARTRATE [Concomitant]
     Dosage: 10/325MG
  14. ZETIA [Concomitant]
  15. TEGRETOL [Concomitant]
  16. LEVOTHROID [Concomitant]
  17. NITROGLYCERIN [Concomitant]
  18. LEVOTHROID [Concomitant]
  19. LANTUS [Concomitant]
  20. ANTIVERT [Concomitant]
  21. INSULIN [Concomitant]
  22. MOBIC [Concomitant]
  23. VALIUM [Concomitant]
  24. NORVASC [Concomitant]
  25. DOXEPIN [Concomitant]
  26. ALLEGRA [Concomitant]
  27. AMITRIPTYLINE HCL [Concomitant]
  28. CYMBALTA [Concomitant]
  29. PRINIVIL [Concomitant]
  30. SOMA [Concomitant]
  31. TOPROL-XL [Concomitant]
  32. LIPITOR [Concomitant]
  33. DILANTIN [Concomitant]
  34. TRIGLIDE [Concomitant]
  35. FIORINAL [Concomitant]
  36. NORCO [Concomitant]
  37. DIGOXIN [Suspect]
     Route: 048
     Dates: start: 20070207, end: 20090409
  38. CORGARD [Concomitant]
  39. LORTAB [Concomitant]
  40. NITROGLYCERIN [Concomitant]
  41. NADOLOL [Concomitant]
  42. CARDIZEM CD [Concomitant]
  43. GLUCOPHAGE [Concomitant]
  44. CYCLOBENZAPRINE [Concomitant]
  45. AMARYL [Concomitant]
  46. CLARINEX /01202601/ [Concomitant]
  47. DEPO-MEDROL [Concomitant]
  48. ENOXAPARIN [Concomitant]
  49. ERYTHROMYCIN [Concomitant]
  50. FENOFIBRATE [Concomitant]
  51. GLYBURIDE [Concomitant]
  52. OMACOR [Concomitant]
  53. PREVACID [Concomitant]
  54. SYNTHROID [Concomitant]
  55. TRILIPIX [Concomitant]
  56. METFORMIN HCL [Concomitant]
  57. PLAVIX [Concomitant]
  58. FLEXERIL [Concomitant]
  59. LEVOTHYROXINE SODIUM [Concomitant]
  60. NOVOLOG [Concomitant]
  61. NEXIUM [Concomitant]
  62. LOVENOX [Concomitant]
  63. REQUIP [Concomitant]
  64. DULOXETINE HYDROCHLORIDE [Concomitant]
  65. IBUPROFEN TABLETS [Concomitant]
  66. LASIX [Concomitant]
  67. LEVAQUIN [Concomitant]
  68. PREMARIN [Concomitant]
  69. REGLAN [Concomitant]
  70. ULTRAM [Concomitant]
  71. POTASSIUM CHLORIDE [Concomitant]
  72. ATIVAN [Concomitant]
     Dosage: PRN
  73. EFFEXOR [Concomitant]
  74. IMDUR [Concomitant]
  75. KLOR-CON [Concomitant]
  76. LANOXIN [Concomitant]
  77. TRAZODONE HCL [Concomitant]
  78. ASPIRIN [Concomitant]
  79. PROZAC [Concomitant]
  80. GLUCOVANCE [Concomitant]
  81. FLUOXETINE [Concomitant]
  82. FOLTX [Concomitant]
  83. DARVOCET-N 100 [Concomitant]
  84. MECLIZINE [Concomitant]
  85. MORPHINE [Concomitant]
  86. CARISOPRODOL [Concomitant]
  87. DOCLISINOPRIL [Concomitant]
  88. DESIPRAMINE HCL [Concomitant]
  89. ISOSORBIDE MONONITRATE [Concomitant]
  90. NEURONTIN [Concomitant]
  91. NPH INSULIN [Concomitant]
     Dosage: 20-40 UNITS
  92. PACERONE [Concomitant]
  93. TRICOR [Concomitant]
  94. VERAPAMIL [Concomitant]

REACTIONS (138)
  - DYSPEPSIA [None]
  - SPEECH DISORDER [None]
  - DIABETES MELLITUS [None]
  - RESTLESS LEGS SYNDROME [None]
  - ATRIAL FIBRILLATION [None]
  - SOMNOLENCE [None]
  - PALPITATIONS [None]
  - SLEEP DISORDER [None]
  - THINKING ABNORMAL [None]
  - CLAUSTROPHOBIA [None]
  - DEPRESSION [None]
  - OBSESSIVE-COMPULSIVE PERSONALITY DISORDER [None]
  - VISION BLURRED [None]
  - PRESYNCOPE [None]
  - CHEST DISCOMFORT [None]
  - HEADACHE [None]
  - HYPERTENSION [None]
  - FACIAL PAIN [None]
  - ASTHENIA [None]
  - SLEEP APNOEA SYNDROME [None]
  - FIBROMYALGIA [None]
  - PLEURISY [None]
  - OROPHARYNGEAL PAIN [None]
  - POLYCYSTIC OVARIES [None]
  - VERTIGO [None]
  - WHEELCHAIR USER [None]
  - RASH [None]
  - THYROID DISORDER [None]
  - BALANCE DISORDER [None]
  - HYPERAESTHESIA [None]
  - CHEST PAIN [None]
  - MYOCARDIAL INFARCTION [None]
  - ANGINA UNSTABLE [None]
  - LIMB DISCOMFORT [None]
  - TROPONIN INCREASED [None]
  - NEUROPATHY PERIPHERAL [None]
  - SENSORY DISTURBANCE [None]
  - MYOCARDIAL ISCHAEMIA [None]
  - CONFUSIONAL STATE [None]
  - CARDIAC PACEMAKER INSERTION [None]
  - ARTERIAL STENT INSERTION [None]
  - HYPOXIC-ISCHAEMIC ENCEPHALOPATHY [None]
  - OEDEMA PERIPHERAL [None]
  - PERIPHERAL VASCULAR DISORDER [None]
  - MUSCLE SPASMS [None]
  - TINNITUS [None]
  - ORTHOPNOEA [None]
  - MALAISE [None]
  - ASTHMA [None]
  - MYOFASCIAL PAIN SYNDROME [None]
  - NOCTURIA [None]
  - NECK PAIN [None]
  - ACTIVITIES OF DAILY LIVING IMPAIRED [None]
  - NEURALGIA [None]
  - OSTEOARTHRITIS [None]
  - NAUSEA [None]
  - OXYGEN SATURATION DECREASED [None]
  - ATELECTASIS [None]
  - HEPATIC STEATOSIS [None]
  - SPLEEN DISORDER [None]
  - CATHETERISATION CARDIAC [None]
  - CORONARY ARTERY DISEASE [None]
  - DIZZINESS [None]
  - DYSLIPIDAEMIA [None]
  - BLINDNESS [None]
  - APHASIA [None]
  - MOVEMENT DISORDER [None]
  - GASTRITIS [None]
  - RHINITIS [None]
  - TACHYCARDIA [None]
  - TRIGEMINAL NEURALGIA [None]
  - ARTERIOSCLEROSIS [None]
  - DISORIENTATION [None]
  - WEIGHT INCREASED [None]
  - NERVE COMPRESSION [None]
  - ECONOMIC PROBLEM [None]
  - SYNCOPE [None]
  - CORONARY ARTERY STENOSIS [None]
  - PAIN IN EXTREMITY [None]
  - ACUTE CORONARY SYNDROME [None]
  - DYSPNOEA [None]
  - MUSCULOSKELETAL PAIN [None]
  - SICK SINUS SYNDROME [None]
  - URINARY TRACT INFECTION [None]
  - VAGINAL INFECTION [None]
  - SINUS ARRHYTHMIA [None]
  - CELLULITIS [None]
  - ABDOMINAL PAIN UPPER [None]
  - GLUCOSE TOLERANCE IMPAIRED [None]
  - NERVOUS SYSTEM DISORDER [None]
  - HYPERCHOLESTEROLAEMIA [None]
  - HYPOGLYCAEMIA [None]
  - HISTRIONIC PERSONALITY DISORDER [None]
  - INJURY [None]
  - CARDIAC FAILURE [None]
  - COSTOCHONDRITIS [None]
  - STENT PLACEMENT [None]
  - OBESITY [None]
  - HYPERLIPIDAEMIA [None]
  - EPISTAXIS [None]
  - INSOMNIA [None]
  - SOCIAL PROBLEM [None]
  - SCIATICA [None]
  - ARTHRITIS [None]
  - ANXIETY [None]
  - ILL-DEFINED DISORDER [None]
  - CARDIAC DISORDER [None]
  - HYPERHIDROSIS [None]
  - BLOOD GLUCOSE INCREASED [None]
  - MUSCULOSKELETAL CHEST PAIN [None]
  - ARRHYTHMIA [None]
  - DIABETIC GASTROPARESIS [None]
  - DIABETIC AUTONOMIC NEUROPATHY [None]
  - MYALGIA [None]
  - HYPOTENSION [None]
  - TENSION HEADACHE [None]
  - CARDIOVASCULAR DECONDITIONING [None]
  - POLLAKIURIA [None]
  - PSORIASIS [None]
  - SUBENDOCARDIAL ISCHAEMIA [None]
  - FEELING ABNORMAL [None]
  - CORONARY ARTERIAL STENT INSERTION [None]
  - CARDIAC FAILURE CONGESTIVE [None]
  - BACK PAIN [None]
  - HYPOTHYROIDISM [None]
  - MENOPAUSAL SYMPTOMS [None]
  - TRANSIENT ISCHAEMIC ATTACK [None]
  - CONSTIPATION [None]
  - BRADYCARDIA [None]
  - HYSTERECTOMY [None]
  - DYSPNOEA EXERTIONAL [None]
  - COUGH [None]
  - ARTHRALGIA [None]
  - DYSPNOEA PAROXYSMAL NOCTURNAL [None]
  - HYPOAESTHESIA [None]
  - HYPOXIA [None]
  - FATIGUE [None]
  - CERVIX CARCINOMA [None]
